FAERS Safety Report 19447524 (Version 1)
Quarter: 2021Q2

REPORT INFORMATION
  Report Type: Spontaneous
  Country: US (occurrence: US)
  Receive Date: 20210621
  Receipt Date: 20210621
  Transmission Date: 20210717
  Serious: Yes (Hospitalization)
  Sender: FDA-Public Use
  Company Number: None

PATIENT
  Age: 67 Year
  Sex: Female

DRUGS (3)
  1. LORAZEPAM. [Suspect]
     Active Substance: LORAZEPAM
     Route: 030
  2. DIPHENHYDRAMINE 50MG/ML IM [Suspect]
     Active Substance: DIPHENHYDRAMINE
  3. HALOPERIDOL 5MG/ML IM [Suspect]
     Active Substance: HALOPERIDOL DECANOATE

REACTIONS (4)
  - Acute respiratory failure [None]
  - Hypoxia [None]
  - Skin warm [None]
  - Somnolence [None]

NARRATIVE: CASE EVENT DATE: 20210523
